FAERS Safety Report 8326337-1 (Version None)
Quarter: 2012Q2

REPORT INFORMATION
  Report Type: 
  Country: None (occurrence: None)
  Receive Date: 20120501
  Receipt Date: 20120423
  Transmission Date: 20120825
  Serious: Yes (Hospitalization)
  Sender: FDA-Public Use
  Company Number: JP-VERTEX PHARMACEUTICALS INC.-AE-2012-005677

PATIENT
  Age: 72 Year
  Sex: Male

DRUGS (7)
  1. ALLOPURINOL [Concomitant]
     Indication: HYPERURICAEMIA
     Route: 048
     Dates: start: 20120216, end: 20120307
  2. REBETOL [Concomitant]
     Indication: HEPATITIS C
     Route: 048
     Dates: start: 20120202, end: 20120215
  3. REBETOL [Concomitant]
     Route: 048
     Dates: start: 20120216, end: 20120222
  4. PEG-INTRON [Concomitant]
     Indication: HEPATITIS C
     Route: 058
     Dates: start: 20120202
  5. TELAVIC (TELAPREVIR) [Suspect]
     Indication: HEPATITIS C
     Route: 048
     Dates: start: 20120202
  6. REBETOL [Concomitant]
     Route: 048
     Dates: start: 20120223
  7. ALLOPURINOL [Concomitant]
     Route: 048
     Dates: start: 20120308

REACTIONS (3)
  - HYPERURICAEMIA [None]
  - DRUG ERUPTION [None]
  - HAEMOGLOBIN DECREASED [None]
